FAERS Safety Report 4344369-5 (Version None)
Quarter: 2004Q2

REPORT INFORMATION
  Report Type: 
  Country: None (occurrence: None)
  Receive Date: 20040419
  Receipt Date: 20040402
  Transmission Date: 20050107
  Serious: Yes (Hospitalization, Other)
  Sender: FDA-Public Use
  Company Number: USA-2003-0006446

PATIENT
  Age: 43 Year
  Sex: Female

DRUGS (21)
  1. OXYCONTIN [Suspect]
     Indication: PAIN
     Dosage: 20 MG, SEE TEXT
     Dates: start: 19981105, end: 20011214
  2. ROXICODONE [Concomitant]
  3. PHENERGAN [Concomitant]
  4. NICOTINE [Concomitant]
  5. ATIVAN [Concomitant]
  6. PRILOSEC [Concomitant]
  7. ESTRADERM [Concomitant]
  8. SANDOSTATIN [Concomitant]
  9. BENADRYL [Concomitant]
  10. CREON [Concomitant]
  11. BENTYL [Concomitant]
  12. PEPCID [Concomitant]
  13. MULTIVITAMINS (THIAMINE HYDROCHLORIDE, RIBOFLAVIN, RETINOL, PANTHENOL, [Concomitant]
  14. AMBIEN [Concomitant]
  15. COLACE CAPCULES (DOCUSATE SODIUM) [Concomitant]
  16. VALIUM [Concomitant]
  17. PROPRANOLOL [Concomitant]
  18. NEURONTIN [Concomitant]
  19. FLEXERIL [Concomitant]
  20. DEMEROL [Concomitant]
  21. VIOKASE (PANCRELIPASE) [Concomitant]

REACTIONS (31)
  - ABDOMINAL DISTENSION [None]
  - ABDOMINAL PAIN [None]
  - CATHETER SEPSIS [None]
  - CENTRAL LINE INFECTION [None]
  - CHEST PAIN [None]
  - CHILLS [None]
  - COUGH [None]
  - CULTURE URINE POSITIVE [None]
  - DEPRESSION [None]
  - DIARRHOEA [None]
  - DRUG DEPENDENCE [None]
  - DRUG WITHDRAWAL SYNDROME [None]
  - GASTRITIS [None]
  - HEADACHE [None]
  - HYPERHIDROSIS [None]
  - INSOMNIA [None]
  - INTESTINAL OBSTRUCTION [None]
  - IRRITABILITY [None]
  - KLEBSIELLA INFECTION [None]
  - MUSCLE CRAMP [None]
  - NAUSEA [None]
  - NERVOUSNESS [None]
  - ORAL PAIN [None]
  - PAIN [None]
  - PANCREATITIS CHRONIC [None]
  - SMALL INTESTINAL OBSTRUCTION [None]
  - TACHYCARDIA [None]
  - TOOTH DISORDER [None]
  - TREMOR [None]
  - VOMITING [None]
  - WEIGHT DECREASED [None]
